FAERS Safety Report 8592961-4 (Version None)
Quarter: 2012Q3

REPORT INFORMATION
  Report Type: 
  Country: None (occurrence: None)
  Receive Date: 20120814
  Receipt Date: 19910718
  Transmission Date: 20120928
  Serious: Yes (Other)
  Sender: FDA-Public Use
  Company Number: US-ROCHE-1099811

PATIENT
  Age: 61 Year
  Sex: Male

DRUGS (9)
  1. LIDOCAINE [Concomitant]
  2. NITROGLYCERIN [Concomitant]
     Route: 060
  3. CAPOTEN [Concomitant]
  4. MORPHINE SULFATE [Concomitant]
  5. ACTIVASE [Suspect]
     Indication: PRODUCT USED FOR UNKNOWN INDICATION
     Route: 042
  6. NITROGLYCERIN [Concomitant]
     Route: 042
  7. CARDIZEM [Concomitant]
  8. NITROGLYCERIN [Concomitant]
  9. NITROGLYCERIN [Concomitant]

REACTIONS (1)
  - ELECTROCARDIOGRAM P WAVE ABNORMAL [None]
